FAERS Safety Report 21113006 (Version 2)
Quarter: 2022Q3

REPORT INFORMATION
  Report Type: Spontaneous
  Country: IL (occurrence: None)
  Receive Date: 20220721
  Receipt Date: 20220726
  Transmission Date: 20221027
  Serious: Yes (Other)
  Sender: FDA-Public Use
  Company Number: IL-ROCHE-3140557

PATIENT
  Age: 72 Year
  Sex: Female

DRUGS (4)
  1. HERCEPTIN [Suspect]
     Active Substance: TRASTUZUMAB
     Indication: Breast cancer
     Route: 065
  2. PERJETA [Suspect]
     Active Substance: PERTUZUMAB
     Indication: Breast cancer
     Route: 065
  3. TAMOXIFEN [Concomitant]
     Active Substance: TAMOXIFEN
  4. TAXOL [Concomitant]
     Active Substance: PACLITAXEL

REACTIONS (10)
  - Fall [Unknown]
  - Cardiac dysfunction [Unknown]
  - Metastases to bone [Unknown]
  - Abdominal hernia obstructive [Unknown]
  - Dizziness [Unknown]
  - Metastases to central nervous system [Unknown]
  - Gait disturbance [Unknown]
  - Dysarthria [Unknown]
  - Post-traumatic pain [Unknown]
  - Brain oedema [Unknown]
